FAERS Safety Report 5227173-5 (Version None)
Quarter: 2007Q1

REPORT INFORMATION
  Report Type: 
  Country: None (occurrence: None)
  Receive Date: 20070202
  Receipt Date: 20070124
  Transmission Date: 20070707
  Serious: Yes (Hospitalization)
  Sender: FDA-Public Use
  Company Number: GB-GLAXOSMITHKLINE-B0450944A

PATIENT
  Age: 57 Year
  Sex: Male
  Weight: 75 kg

DRUGS (6)
  1. ACETAMINOPHEN [Suspect]
     Route: 065
  2. HUMIRA [Suspect]
     Indication: ANKYLOSING SPONDYLITIS
     Route: 058
     Dates: start: 20050310, end: 20050715
  3. MELOXICAM [Concomitant]
     Route: 065
  4. UNKNOWN [Concomitant]
     Indication: ANKYLOSING SPONDYLITIS
     Dosage: 90MG PER DAY
     Route: 048
  5. UNKNOWN [Concomitant]
     Dosage: 90MG PER DAY
     Route: 048
  6. ACETAMINOPHEN [Concomitant]
     Route: 065

REACTIONS (9)
  - ANKYLOSING SPONDYLITIS [None]
  - DEPRESSION [None]
  - DRUG WITHDRAWAL SYNDROME [None]
  - INTENTIONAL OVERDOSE [None]
  - MALAISE [None]
  - MENTAL DISORDER [None]
  - PAIN [None]
  - SUICIDAL IDEATION [None]
  - SUICIDE ATTEMPT [None]
